FAERS Safety Report 13662227 (Version 1)
Quarter: 2017Q2

REPORT INFORMATION
  Report Type: Spontaneous
  Country: US (occurrence: US)
  Receive Date: 20170616
  Receipt Date: 20170616
  Transmission Date: 20170830
  Serious: Yes (Other)
  Sender: FDA-Public Use
  Company Number: US-BAUSCH-BL-2017-019009

PATIENT
  Age: 76 Year
  Sex: Female

DRUGS (2)
  1. DEMSER [Suspect]
     Active Substance: METYROSINE
     Indication: HYPERTENSION
     Route: 048
  2. TEMODAL [Concomitant]
     Active Substance: TEMOZOLOMIDE
     Indication: CHEMOTHERAPY
     Dates: start: 201705

REACTIONS (3)
  - Decreased appetite [Unknown]
  - Speech disorder [Unknown]
  - Hypersomnia [Unknown]
